FAERS Safety Report 13983852 (Version 3)
Quarter: 2018Q4

REPORT INFORMATION
  Report Type: Spontaneous
  Country: JP (occurrence: JP)
  Receive Date: 20170918
  Receipt Date: 20181228
  Transmission Date: 20190204
  Serious: Yes (Life-Threatening, Other)
  Sender: FDA-Public Use
  Company Number: JP-BAUSCH-BL-2017-026871

PATIENT
  Age: 60 Year
  Sex: Male

DRUGS (23)
  1. IRINOTECAN [Suspect]
     Active Substance: IRINOTECAN
     Indication: METASTASES TO ADRENALS
     Dosage: THIRD-LINE CHEMOTHERAPY
     Route: 065
  2. LEUCOVORIN. [Suspect]
     Active Substance: LEUCOVORIN
     Indication: COLORECTAL CANCER METASTATIC
     Dosage: ADJUVANT CHEMOTHERAPY, SECOND-LINE CHEMOTHERAPY
     Route: 048
  3. LEUCOVORIN. [Suspect]
     Active Substance: LEUCOVORIN
     Indication: METASTASES TO ADRENALS
     Dosage: FOURTH-LINE CHEMOTHERAPY
     Route: 065
     Dates: start: 2012
  4. BEVACIZUMAB. [Concomitant]
     Active Substance: BEVACIZUMAB
     Indication: METASTASES TO LYMPH NODES
  5. OXALIPLATIN. [Suspect]
     Active Substance: OXALIPLATIN
     Indication: COLORECTAL CANCER METASTATIC
     Route: 065
     Dates: start: 2010
  6. OXALIPLATIN. [Suspect]
     Active Substance: OXALIPLATIN
     Indication: METASTASES TO LYMPH NODES
     Dosage: FOURTH-LINE CHEMOTHERAPY
     Route: 065
  7. PANITUMUMAB [Suspect]
     Active Substance: PANITUMUMAB
     Indication: METASTASES TO ADRENALS
  8. CAPECITABINE. [Concomitant]
     Active Substance: CAPECITABINE
     Indication: METASTASES TO LYMPH NODES
  9. CAPECITABINE. [Concomitant]
     Active Substance: CAPECITABINE
     Indication: METASTASES TO ADRENALS
  10. OXALIPLATIN. [Suspect]
     Active Substance: OXALIPLATIN
     Indication: METASTASES TO ADRENALS
  11. BEVACIZUMAB. [Concomitant]
     Active Substance: BEVACIZUMAB
     Indication: COLORECTAL CANCER METASTATIC
     Dates: start: 2010
  12. FLUOROURACIL. [Suspect]
     Active Substance: FLUOROURACIL
     Indication: COLORECTAL CANCER METASTATIC
     Dosage: FIRST-LINE CHEMOTHERAPY
     Route: 065
  13. FLUOROURACIL. [Suspect]
     Active Substance: FLUOROURACIL
     Indication: METASTASES TO ADRENALS
     Dosage: SECOND-LINE CHEMOTHERAPY AS A ADJUVANT CHEMOTHERAPY
     Route: 048
  14. CETUXIMAB. [Suspect]
     Active Substance: CETUXIMAB
     Indication: COLORECTAL CANCER METASTATIC
     Route: 065
  15. PANITUMUMAB [Suspect]
     Active Substance: PANITUMUMAB
     Indication: METASTASES TO LYMPH NODES
     Dosage: THIRD-LINE CHEMOTHERAPY
     Route: 065
  16. CAPECITABINE. [Concomitant]
     Active Substance: CAPECITABINE
     Indication: COLORECTAL CANCER METASTATIC
     Dates: start: 2010
  17. IRINOTECAN [Suspect]
     Active Substance: IRINOTECAN
     Indication: COLORECTAL CANCER METASTATIC
     Dosage: FIRST-LINE CHEMOTHERAPY
     Route: 065
  18. IRINOTECAN [Suspect]
     Active Substance: IRINOTECAN
     Indication: METASTASES TO LYMPH NODES
     Route: 065
     Dates: start: 2012
  19. FLUOROURACIL. [Suspect]
     Active Substance: FLUOROURACIL
     Dosage: FOURTH-LINE CHEMOTHERAPY
     Route: 065
     Dates: start: 2012
  20. PANITUMUMAB [Suspect]
     Active Substance: PANITUMUMAB
     Indication: COLORECTAL CANCER METASTATIC
     Route: 065
     Dates: start: 2012
  21. BEVACIZUMAB. [Concomitant]
     Active Substance: BEVACIZUMAB
     Indication: METASTASES TO ADRENALS
  22. FLUOROURACIL. [Suspect]
     Active Substance: FLUOROURACIL
     Indication: METASTASES TO LYMPH NODES
     Dosage: THIRD-LINE CHEMOTHERAPY
     Route: 065
  23. LEUCOVORIN. [Suspect]
     Active Substance: LEUCOVORIN
     Indication: METASTASES TO LYMPH NODES
     Dosage: FIRST-LINE CHEMOTHERAPY
     Route: 065

REACTIONS (4)
  - Rash [Unknown]
  - Hypersensitivity [Unknown]
  - Disease progression [Unknown]
  - Drug ineffective [Unknown]
